FAERS Safety Report 6589080-5 (Version None)
Quarter: 2010Q1

REPORT INFORMATION
  Report Type: 
  Country: None (occurrence: None)
  Receive Date: 20100218
  Receipt Date: 20100211
  Transmission Date: 20100710
  Serious: Yes (Hospitalization)
  Sender: FDA-Public Use
  Company Number: GXKR2010GB01763

PATIENT
  Age: 36 Year
  Sex: Male

DRUGS (3)
  1. PROPRANOLOL (NGX) [Suspect]
     Dosage: 80 MG/DAY
     Route: 048
     Dates: start: 20091102, end: 20091130
  2. ESCITALOPRAM [Suspect]
     Indication: DEPRESSION
     Dosage: 10 MG/DAY
     Route: 048
     Dates: start: 20091116
  3. ESCITALOPRAM [Suspect]
     Dosage: 20 MG/DAY
     Route: 048

REACTIONS (4)
  - DEPRESSION [None]
  - HALLUCINATION, AUDITORY [None]
  - PSYCHOTIC DISORDER [None]
  - SUICIDAL IDEATION [None]
